FAERS Safety Report 20007892 (Version 3)
Quarter: 2021Q4

REPORT INFORMATION
  Report Type: Report from Study
  Country: US (occurrence: US)
  Receive Date: 20211028
  Receipt Date: 20211126
  Transmission Date: 20220303
  Serious: Yes (Other)
  Sender: FDA-Public Use
  Company Number: US-ABBVIE-21K-163-4139387-00

PATIENT
  Age: 50 Year
  Sex: Female
  Weight: 75.818 kg

DRUGS (35)
  1. HUMIRA [Suspect]
     Active Substance: ADALIMUMAB
     Indication: Rheumatoid arthritis
     Dosage: CITRATE FREE
     Route: 058
     Dates: start: 2012, end: 2014
  2. HUMIRA [Suspect]
     Active Substance: ADALIMUMAB
     Indication: Sjogren^s syndrome
     Dosage: CITRATE FREE
     Route: 058
     Dates: start: 202101
  3. PREDNISONE [Concomitant]
     Active Substance: PREDNISONE
     Indication: Rheumatoid arthritis
  4. PREDNISONE [Concomitant]
     Active Substance: PREDNISONE
     Indication: Sjogren^s syndrome
  5. PREDNISONE [Concomitant]
     Active Substance: PREDNISONE
     Indication: Asthenia
  6. PREDNISONE [Concomitant]
     Active Substance: PREDNISONE
     Indication: Blood pressure abnormal
  7. TRAMADOL [Concomitant]
     Active Substance: TRAMADOL
     Indication: Sleep disorder
  8. TRAMADOL [Concomitant]
     Active Substance: TRAMADOL
     Indication: Insomnia
  9. CEVIMELINE HYDROCHLORIDE [Concomitant]
     Active Substance: CEVIMELINE HYDROCHLORIDE
     Indication: Dry mouth
  10. CEVIMELINE HYDROCHLORIDE [Concomitant]
     Active Substance: CEVIMELINE HYDROCHLORIDE
     Indication: Dry mouth
  11. CEVIMELINE HYDROCHLORIDE [Concomitant]
     Active Substance: CEVIMELINE HYDROCHLORIDE
     Indication: Prophylaxis
  12. LEFLUNOMIDE [Concomitant]
     Active Substance: LEFLUNOMIDE
     Indication: Rheumatoid arthritis
  13. LEFLUNOMIDE [Concomitant]
     Active Substance: LEFLUNOMIDE
     Indication: Sjogren^s syndrome
  14. LEFLUNOMIDE [Concomitant]
     Active Substance: LEFLUNOMIDE
     Indication: Inflammation
  15. DEXILANT [Concomitant]
     Active Substance: DEXLANSOPRAZOLE
     Indication: Gastrooesophageal reflux disease
  16. DEXILANT [Concomitant]
     Active Substance: DEXLANSOPRAZOLE
     Indication: Sjogren^s syndrome
  17. PLAQUENIL [Concomitant]
     Active Substance: HYDROXYCHLOROQUINE SULFATE
     Indication: Arthritis
  18. PLAQUENIL [Concomitant]
     Active Substance: HYDROXYCHLOROQUINE SULFATE
     Indication: Sjogren^s syndrome
  19. LINZESS [Concomitant]
     Active Substance: LINACLOTIDE
     Indication: Gastrointestinal motility disorder
  20. LINZESS [Concomitant]
     Active Substance: LINACLOTIDE
     Indication: Impaired gastric emptying
  21. CANNABIDIOL\HERBALS [Concomitant]
     Active Substance: CANNABIDIOL\HERBALS
     Indication: Sleep disorder
  22. MAGNESIUM [Concomitant]
     Active Substance: MAGNESIUM
     Indication: Vitamin supplementation
  23. VOLTAREN [Concomitant]
     Active Substance: DICLOFENAC SODIUM
     Indication: Arthralgia
  24. VOLTAREN [Concomitant]
     Active Substance: DICLOFENAC SODIUM
     Indication: Arthritis
  25. VENTOLIN [Concomitant]
     Active Substance: ALBUTEROL SULFATE
     Indication: Dyspnoea
     Dosage: INHALER
  26. VENTOLIN [Concomitant]
     Active Substance: ALBUTEROL SULFATE
     Indication: Asthma
  27. EPIPEN [Concomitant]
     Active Substance: EPINEPHRINE
     Indication: Anaphylactic reaction
  28. TYLENOL [Concomitant]
     Active Substance: ACETAMINOPHEN
     Indication: Breakthrough pain
  29. DUREZOL [Concomitant]
     Active Substance: DIFLUPREDNATE
     Indication: Uveitis
  30. DUREZOL [Concomitant]
     Active Substance: DIFLUPREDNATE
     Indication: Scleritis
  31. MISOPROSTOL [Concomitant]
     Active Substance: MISOPROSTOL
     Indication: Gastrointestinal disorder prophylaxis
  32. PROVIGIL [Concomitant]
     Active Substance: MODAFINIL
     Indication: Hypotension
  33. TUMS [Concomitant]
     Active Substance: CALCIUM CARBONATE
     Indication: Calcium metabolism disorder
  34. PFIZER-BIONTECH COVID-19 VACCINE [Concomitant]
     Active Substance: TOZINAMERAN
     Indication: COVID-19 immunisation
     Dosage: 1ST DOSE
     Route: 030
     Dates: start: 20210604, end: 20210604
  35. PFIZER-BIONTECH COVID-19 VACCINE [Concomitant]
     Active Substance: TOZINAMERAN
     Dosage: 2ND DOSE
     Route: 030
     Dates: start: 20210628, end: 20210628

REACTIONS (24)
  - Device lead damage [Recovered/Resolved]
  - Clavicle fracture [Recovering/Resolving]
  - Muscle rupture [Recovering/Resolving]
  - Shoulder operation [Recovered/Resolved]
  - Muscle fatigue [Unknown]
  - Off label use [Not Recovered/Not Resolved]
  - Eye disorder [Recovering/Resolving]
  - Sjogren^s syndrome [Not Recovered/Not Resolved]
  - Osteoporosis [Recovering/Resolving]
  - Stress fracture [Recovering/Resolving]
  - Muscle fatigue [Recovering/Resolving]
  - Myasthenia gravis [Not Recovered/Not Resolved]
  - Fall [Recovered/Resolved]
  - Neuropathy peripheral [Recovering/Resolving]
  - Eye swelling [Recovering/Resolving]
  - Vision blurred [Recovering/Resolving]
  - Syncope [Recovered/Resolved]
  - Foot fracture [Recovering/Resolving]
  - Acrochordon [Recovered/Resolved]
  - Eye pain [Recovering/Resolving]
  - Dyspnoea [Recovering/Resolving]
  - Rheumatoid arthritis [Recovering/Resolving]
  - COVID-19 [Recovered/Resolved]
  - Pain [Recovered/Resolved]

NARRATIVE: CASE EVENT DATE: 20161001
